FAERS Safety Report 7873795-2 (Version None)
Quarter: 2011Q4

REPORT INFORMATION
  Report Type: 
  Country: None (occurrence: None)
  Receive Date: 20111030
  Receipt Date: 20110510
  Transmission Date: 20120403
  Serious: No
  Sender: FDA-Public Use
  Company Number: US-AMGEN-USASP2011024373

PATIENT
  Sex: Female

DRUGS (1)
  1. ENBREL [Suspect]
     Indication: PSORIATIC ARTHROPATHY
     Dosage: 50 MG, QWK
     Dates: start: 20070601

REACTIONS (7)
  - PSORIATIC ARTHROPATHY [None]
  - URINARY TRACT INFECTION [None]
  - PAIN [None]
  - INJECTION SITE PAIN [None]
  - WEIGHT DECREASED [None]
  - FATIGUE [None]
  - VISUAL IMPAIRMENT [None]
